FAERS Safety Report 11270158 (Version 6)
Quarter: 2015Q3

REPORT INFORMATION
  Report Type: Spontaneous
  Country: IT (occurrence: IT)
  Receive Date: 20150714
  Receipt Date: 20150827
  Transmission Date: 20151125
  Serious: Yes (Death)
  Sender: FDA-Public Use
  Company Number: IT-JNJFOC-20150707650

PATIENT
  Age: 68 Year
  Sex: Male
  Weight: 64 kg

DRUGS (2)
  1. SOVALDI [Suspect]
     Active Substance: SOFOSBUVIR
     Indication: LIVER DISORDER
     Route: 048
     Dates: start: 20150507, end: 20150706
  2. OLYSIO [Suspect]
     Active Substance: SIMEPREVIR
     Indication: LIVER DISORDER
     Route: 048
     Dates: start: 20150507, end: 20150706

REACTIONS (1)
  - Sudden death [Fatal]

NARRATIVE: CASE EVENT DATE: 20150707
